FAERS Safety Report 9620101 (Version 2)
Quarter: 2013Q4

REPORT INFORMATION
  Report Type: Spontaneous
  Country: US (occurrence: US)
  Receive Date: 20131014
  Receipt Date: 20131021
  Transmission Date: 20140711
  Serious: Yes (Hospitalization, Other)
  Sender: FDA-Public Use
  Company Number: US-BAXTER-2013BAX039813

PATIENT
  Age: 84 Year
  Sex: Female

DRUGS (2)
  1. DIANEAL LOW CALCIUM [Suspect]
     Indication: PERITONEAL DIALYSIS
     Route: 033
     Dates: start: 201207
  2. EXTRANEAL [Suspect]
     Indication: PERITONEAL DIALYSIS
     Route: 033
     Dates: start: 201207

REACTIONS (4)
  - Arthritis [Recovering/Resolving]
  - Pneumonia [Recovering/Resolving]
  - Atrial fibrillation [Recovering/Resolving]
  - Urinary tract infection [Recovering/Resolving]
